FAERS Safety Report 5444238-3 (Version None)
Quarter: 2007Q3

REPORT INFORMATION
  Report Type: 
  Country: None (occurrence: None)
  Receive Date: 20070831
  Receipt Date: 20070815
  Transmission Date: 20080115
  Serious: Yes (Hospitalization)
  Sender: FDA-Public Use
  Company Number: 8025972

PATIENT
  Age: 3 Year
  Sex: Female

DRUGS (2)
  1. XYZAL [Suspect]
     Dosage: PO
     Route: 048
  2. XYZAL [Suspect]
     Dosage: 2.5 ML 1/D PO
     Route: 048

REACTIONS (2)
  - OTOSALPINGITIS [None]
  - SOMNOLENCE [None]
